FAERS Safety Report 7141082-6 (Version None)
Quarter: 2010Q4

REPORT INFORMATION
  Report Type: 
  Country: None (occurrence: None)
  Receive Date: 20101207
  Receipt Date: 20101126
  Transmission Date: 20110411
  Serious: Yes (Death)
  Sender: FDA-Public Use
  Company Number: CZ-JNJFOC-20100905734

PATIENT
  Sex: Male
  Weight: 90 kg

DRUGS (11)
  1. TAPENTADOL [Suspect]
     Route: 048
     Dates: start: 20100907, end: 20100911
  2. TAPENTADOL [Suspect]
     Indication: PAIN
     Route: 048
     Dates: start: 20100907, end: 20100911
  3. SEVREDOL [Concomitant]
     Indication: PAIN
     Route: 048
  4. RANISAN [Concomitant]
     Indication: GASTRIC ULCER
     Route: 048
  5. TRAMADOL HCL [Concomitant]
     Indication: PAIN
  6. ALGIFEN [Concomitant]
     Indication: PAIN
  7. INDOMETHACIN SODIUM [Concomitant]
     Indication: PAIN
  8. PERFALGAN [Concomitant]
     Indication: PAIN
  9. NOVALGIN [Concomitant]
     Indication: PAIN
  10. EUPHYLLINE [Concomitant]
     Indication: CHRONIC RESPIRATORY DISEASE
  11. GUTALAX [Concomitant]
     Indication: CONSTIPATION

REACTIONS (1)
  - DEATH [None]
